FAERS Safety Report 13393386 (Version 2)
Quarter: 2017Q2

REPORT INFORMATION
  Report Type: Spontaneous
  Country: DE (occurrence: DE)
  Receive Date: 20170331
  Receipt Date: 20170519
  Transmission Date: 20170830
  Serious: Yes (Hospitalization)
  Sender: FDA-Public Use
  Company Number: DE-PFIZER INC-2017138501

PATIENT
  Age: 18 Year
  Sex: Male
  Weight: 92 kg

DRUGS (1)
  1. SOMAVERT [Suspect]
     Active Substance: PEGVISOMANT
     Indication: BLOOD GROWTH HORMONE INCREASED
     Dosage: 30 UNIT NOT PROVIDED, EVERY 2 DAYS
     Route: 058

REACTIONS (2)
  - Product quality issue [Unknown]
  - Injection site pain [Unknown]
